FAERS Safety Report 9409955 (Version 2)
Quarter: 2013Q3

REPORT INFORMATION
  Report Type: Spontaneous
  Country: CA (occurrence: CA)
  Receive Date: 20130719
  Receipt Date: 20130920
  Transmission Date: 20140515
  Serious: Yes (Other)
  Sender: FDA-Public Use
  Company Number: CA-SANOFI-AVENTIS-2013SA072017

PATIENT
  Age: 67 Year
  Sex: Male

DRUGS (5)
  1. MULTAQ [Suspect]
     Indication: ATRIAL FIBRILLATION
     Route: 048
     Dates: start: 20130301, end: 20130306
  2. ADALAT XL [Concomitant]
  3. COVERSYL PLUS [Concomitant]
  4. LIPITOR [Concomitant]
  5. LOSEC [Concomitant]

REACTIONS (1)
  - Blood creatinine increased [Recovered/Resolved]
